FAERS Safety Report 18063597 (Version 3)
Quarter: 2021Q2

REPORT INFORMATION
  Report Type: Spontaneous
  Country: RU (occurrence: RU)
  Receive Date: 20200724
  Receipt Date: 20210629
  Transmission Date: 20210717
  Serious: Yes (Other)
  Sender: FDA-Public Use
  Company Number: RU-TEVA-2020-RU-1803552

PATIENT
  Age: 55 Year
  Sex: Female

DRUGS (1)
  1. SALBUTAMOL?TEVA [Suspect]
     Active Substance: ALBUTEROL
     Route: 055

REACTIONS (3)
  - Choking [Unknown]
  - Device occlusion [Unknown]
  - Device delivery system issue [Unknown]
